FAERS Safety Report 18568972 (Version 1)
Quarter: 2020Q4

REPORT INFORMATION
  Report Type: Spontaneous
  Country: CA (occurrence: CA)
  Receive Date: 20201202
  Receipt Date: 20201202
  Transmission Date: 20210114
  Serious: Yes (Other)
  Sender: FDA-Public Use
  Company Number: CA-SA-2020SA337896

PATIENT

DRUGS (2)
  1. KEVZARA [Suspect]
     Active Substance: SARILUMAB
     Dosage: 200 MG, Q10D
     Dates: start: 2016
  2. ACTEMRA [Concomitant]
     Active Substance: TOCILIZUMAB

REACTIONS (5)
  - Behaviour disorder [Unknown]
  - Decreased interest [Unknown]
  - Still^s disease [Unknown]
  - Unevaluable event [Unknown]
  - Off label use [Unknown]

NARRATIVE: CASE EVENT DATE: 2016
